FAERS Safety Report 4599159-5 (Version None)
Quarter: 2005Q1

REPORT INFORMATION
  Report Type: 
  Country: None (occurrence: None)
  Receive Date: 20050303
  Receipt Date: 20050214
  Transmission Date: 20050727
  Serious: Yes (Hospitalization)
  Sender: FDA-Public Use
  Company Number: USA050290707

PATIENT
  Age: 65 Year
  Sex: Male

DRUGS (2)
  1. ZYPREXA [Suspect]
     Indication: SLEEP DISORDER
     Dosage: 30 MG DAY
     Dates: start: 20040801
  2. DEPAKENE [Concomitant]

REACTIONS (1)
  - HEADACHE [None]
